FAERS Safety Report 13485266 (Version 1)
Quarter: 2017Q2

REPORT INFORMATION
  Report Type: Spontaneous
  Country: US (occurrence: US)
  Receive Date: 20170425
  Receipt Date: 20170425
  Transmission Date: 20170830
  Serious: Yes (Hospitalization)
  Sender: FDA-Public Use
  Company Number: None

PATIENT
  Age: 20 Year
  Sex: Female
  Weight: 63.56 kg

DRUGS (2)
  1. SERTRALINE HYDROCHLORIDE USP GENERIC FOR ZOLOFT [Suspect]
     Active Substance: SERTRALINE HYDROCHLORIDE
     Indication: ANXIETY
     Dosage: 30 PILLS ONCE DAILY IN THE MORNING BY MOUTH
     Route: 048
     Dates: start: 20160716, end: 20160728
  2. SERTRALINE HYDROCHLORIDE USP GENERIC FOR ZOLOFT [Suspect]
     Active Substance: SERTRALINE HYDROCHLORIDE
     Indication: DEPRESSION
     Dosage: 30 PILLS ONCE DAILY IN THE MORNING BY MOUTH
     Route: 048
     Dates: start: 20160716, end: 20160728

REACTIONS (19)
  - Retching [None]
  - Nausea [None]
  - Hyperreflexia [None]
  - Anger [None]
  - Depersonalisation/derealisation disorder [None]
  - Vomiting [None]
  - Hallucination, olfactory [None]
  - Drug withdrawal syndrome [None]
  - Derealisation [None]
  - Head discomfort [None]
  - Paraesthesia [None]
  - Bradyphrenia [None]
  - Feeling abnormal [None]
  - Crying [None]
  - Hypoaesthesia [None]
  - Dizziness [None]
  - Burning feet syndrome [None]
  - Mydriasis [None]
  - Memory impairment [None]

NARRATIVE: CASE EVENT DATE: 20160729
